FAERS Safety Report 8321822-0 (Version None)
Quarter: 2012Q2

REPORT INFORMATION
  Report Type: 
  Country: None (occurrence: None)
  Receive Date: 20120430
  Receipt Date: 20120423
  Transmission Date: 20120825
  Serious: Yes (Death, Hospitalization)
  Sender: FDA-Public Use
  Company Number: US-GLAXOSMITHKLINE-A0932622A

PATIENT
  Sex: Female

DRUGS (1)
  1. ROSIGLITAZONE MALEATE [Suspect]
     Indication: TYPE 2 DIABETES MELLITUS

REACTIONS (5)
  - JOINT SWELLING [None]
  - DIZZINESS [None]
  - CARDIAC FAILURE CONGESTIVE [None]
  - DEATH [None]
  - MUSCLE SPASMS [None]
